FAERS Safety Report 11590205 (Version 1)
Quarter: 2015Q4

REPORT INFORMATION
  Report Type: Other
  Country: SG (occurrence: SG)
  Receive Date: 20151002
  Receipt Date: 20151002
  Transmission Date: 20160304
  Serious: Yes (Other)
  Sender: FDA-Public Use
  Company Number: SG-WARNER CHILCOTT, LLC-1042511

PATIENT
  Age: 88 Year
  Sex: Female

DRUGS (2)
  1. ACTONEL [Suspect]
     Active Substance: RISEDRONATE SODIUM
     Route: 048
  2. ALENDRONATE SODIUM. [Suspect]
     Active Substance: ALENDRONATE SODIUM
     Route: 048

REACTIONS (5)
  - Atypical femur fracture [None]
  - Soft tissue inflammation [None]
  - Fall [None]
  - Pathological fracture [None]
  - Periprosthetic fracture [None]
